FAERS Safety Report 8335114-7 (Version None)
Quarter: 2012Q2

REPORT INFORMATION
  Report Type: 
  Country: None (occurrence: None)
  Receive Date: 20120503
  Receipt Date: 20100517
  Transmission Date: 20120825
  Serious: No
  Sender: FDA-Public Use
  Company Number: US-TEVA-2010002795

PATIENT
  Age: 50 Year
  Sex: Female
  Weight: 59.02 kg

DRUGS (3)
  1. NUVIGIL [Suspect]
     Indication: SOMNOLENCE
     Dosage: 150 MILLIGRAM;
     Route: 048
     Dates: start: 20100501, end: 20100517
  2. CYMBALTA [Concomitant]
     Indication: DEPRESSION
     Dates: start: 20100501, end: 20100517
  3. SEROQUEL [Concomitant]
     Indication: BIPOLAR DISORDER
     Route: 048
     Dates: start: 20100501, end: 20100517

REACTIONS (1)
  - RASH [None]
